FAERS Safety Report 21302875 (Version 1)
Quarter: 2022Q3

REPORT INFORMATION
  Report Type: Report from Study
  Country: US (occurrence: US)
  Receive Date: 20220907
  Receipt Date: 20220907
  Transmission Date: 20221027
  Serious: Yes (Other)
  Sender: FDA-Public Use
  Company Number: US-TAKEDA-2022TUS045598

PATIENT
  Sex: Male

DRUGS (1)
  1. VEDOLIZUMAB [Suspect]
     Active Substance: VEDOLIZUMAB
     Indication: Colitis ulcerative
     Dosage: 300 MILLIGRAM
     Route: 042

REACTIONS (6)
  - Glaucoma [Unknown]
  - Thrombosis [Unknown]
  - Gait disturbance [Unknown]
  - Adverse event [Unknown]
  - Tachycardia [Unknown]
  - Product dose omission issue [Unknown]
